FAERS Safety Report 22113016 (Version 1)
Quarter: 2023Q1

REPORT INFORMATION
  Report Type: Spontaneous
  Country: US (occurrence: US)
  Receive Date: 20230320
  Receipt Date: 20230320
  Transmission Date: 20230418
  Serious: No
  Sender: FDA-Public Use
  Company Number: US-LUPIN PHARMACEUTICALS INC.-2023-02088

PATIENT

DRUGS (2)
  1. NORETHINDRONE [Suspect]
     Active Substance: NORETHINDRONE
     Indication: Product used for unknown indication
     Dosage: 0.35 MG
     Route: 048
  2. AMOXICILLIN\CLAVULANATE POTASSIUM [Concomitant]
     Active Substance: AMOXICILLIN\CLAVULANATE POTASSIUM
     Indication: Tooth disorder
     Dosage: UNK (875MG/125MG)
     Route: 065

REACTIONS (2)
  - Bacterial vaginosis [Unknown]
  - Vaginal haemorrhage [Unknown]
